FAERS Safety Report 4890731-1 (Version None)
Quarter: 2006Q1

REPORT INFORMATION
  Report Type: 
  Country: None (occurrence: None)
  Receive Date: 20060123
  Receipt Date: 20060114
  Transmission Date: 20060701
  Serious: Yes (Other)
  Sender: FDA-Public Use
  Company Number: 2006007714

PATIENT
  Age: 14 Year
  Sex: Female

DRUGS (1)
  1. UNISOM [Suspect]
     Indication: ACCIDENTAL OVERDOSE
     Dosage: 6 SLEEPGELS ONCE, ORAL
     Route: 048
     Dates: start: 20060114, end: 20060114

REACTIONS (3)
  - ACCIDENTAL EXPOSURE [None]
  - DIZZINESS [None]
  - SOMNOLENCE [None]
